FAERS Safety Report 7866365-3 (Version None)
Quarter: 2011Q4

REPORT INFORMATION
  Report Type: 
  Country: None (occurrence: None)
  Receive Date: 20111028
  Receipt Date: 20110606
  Transmission Date: 20120403
  Serious: No
  Sender: FDA-Public Use
  Company Number: US-GLAXOSMITHKLINE-A0930382A

PATIENT
  Age: 58 Year
  Sex: Female

DRUGS (4)
  1. CPAP [Concomitant]
  2. OMEPRAZOLE [Concomitant]
  3. ALBUTEROL INHALER [Concomitant]
  4. ADVAIR DISKUS 100/50 [Suspect]
     Indication: CHRONIC OBSTRUCTIVE PULMONARY DISEASE
     Dosage: 1PUFF TWICE PER DAY
     Route: 055
     Dates: start: 20080301

REACTIONS (4)
  - PRODUCT QUALITY ISSUE [None]
  - BLOOD PRESSURE FLUCTUATION [None]
  - PALPITATIONS [None]
  - BLOOD PRESSURE INCREASED [None]
